FAERS Safety Report 9017021 (Version 1)
Quarter: 2013Q1

REPORT INFORMATION
  Report Type: Report from Study
  Country: BR (occurrence: BR)
  Receive Date: 20130117
  Receipt Date: 20130117
  Transmission Date: 20140127
  Serious: Yes (Other)
  Sender: FDA-Public Use
  Company Number: BR-ABBOTT-13P-020-1035067-00

PATIENT
  Sex: Male
  Weight: 52 kg

DRUGS (4)
  1. HUMIRA [Suspect]
     Indication: CROHN^S DISEASE
     Dosage: WEEK 0
     Route: 058
     Dates: start: 201108
  2. HUMIRA [Suspect]
     Route: 058
  3. MESALAMINE [Concomitant]
     Indication: INFECTION
     Route: 048
     Dates: start: 2009
  4. AZATHIOPRINE [Concomitant]
     Indication: IMMUNE SYSTEM DISORDER
     Route: 048
     Dates: start: 2012

REACTIONS (5)
  - Gastrointestinal injury [Recovered/Resolved]
  - Gastrointestinal injury [Unknown]
  - Gastrointestinal injury [Unknown]
  - Gastrointestinal injury [Unknown]
  - Pain [Unknown]
